FAERS Safety Report 16159304 (Version 2)
Quarter: 2019Q2

REPORT INFORMATION
  Report Type: Report from Study
  Country: US (occurrence: US)
  Receive Date: 20190404
  Receipt Date: 20190426
  Transmission Date: 20190711
  Serious: Yes (Death)
  Sender: FDA-Public Use
  Company Number: US-ADAMAS PHARMA, LLC-2019ADA00665

PATIENT
  Sex: Female

DRUGS (3)
  1. GOCOVRI [Suspect]
     Active Substance: AMANTADINE
     Indication: DYSKINESIA
     Dosage: 68.5 MG, 1X/DAY AT BEDTIME
     Route: 048
     Dates: start: 20181206
  2. REMERON [Concomitant]
     Active Substance: MIRTAZAPINE
  3. UNSPECIFIED LEVODOPA-BASED THERAPY [Concomitant]

REACTIONS (1)
  - Cardiac failure congestive [Fatal]
